FAERS Safety Report 4665797-4 (Version None)
Quarter: 2005Q2

REPORT INFORMATION
  Report Type: 
  Country: None (occurrence: None)
  Receive Date: 20050519
  Receipt Date: 20050225
  Transmission Date: 20051028
  Serious: No
  Sender: FDA-Public Use
  Company Number: US-GLAXOSMITHKLINE-A0547363A

PATIENT
  Age: 78 Year
  Sex: Female

DRUGS (7)
  1. LOTRONEX [Suspect]
     Indication: IRRITABLE BOWEL SYNDROME
     Dosage: 1MG TWICE PER DAY
     Route: 048
     Dates: start: 20041228
  2. ALLEGRA [Concomitant]
  3. ATENOLOL [Concomitant]
  4. ALPRAZOLAM [Concomitant]
  5. VITAMIN E [Concomitant]
  6. VIT C TAB [Concomitant]
  7. FOSAMAX [Concomitant]

REACTIONS (3)
  - DIARRHOEA [None]
  - FAECES HARD [None]
  - FLATULENCE [None]
